FAERS Safety Report 14918968 (Version 1)
Quarter: 2018Q2

REPORT INFORMATION
  Report Type: Spontaneous
  Country: US (occurrence: US)
  Receive Date: 20180502
  Receipt Date: 20180502
  Transmission Date: 20180711
  Serious: Yes (Other)
  Sender: FDA-Public Use
  Company Number: None

PATIENT
  Age: 56 Year
  Sex: Female
  Weight: 83.25 kg

DRUGS (2)
  1. NOVOLOG [Concomitant]
     Active Substance: INSULIN ASPART
  2. BYDUREON [Suspect]
     Active Substance: EXENATIDE
     Dosage: ?          OTHER FREQUENCY:1 WEEKLY SHOT;?
     Dates: start: 20180409, end: 20180423

REACTIONS (1)
  - Injection site mass [None]

NARRATIVE: CASE EVENT DATE: 20180409
